FAERS Safety Report 7995007-1 (Version None)
Quarter: 2011Q4

REPORT INFORMATION
  Report Type: 
  Country: None (occurrence: None)
  Receive Date: 20111220
  Receipt Date: 20111026
  Transmission Date: 20120403
  Serious: Yes (Death, Hospitalization, Other)
  Sender: FDA-Public Use
  Company Number: US-PURDUE-USA-2008-0033406

PATIENT
  Sex: Male

DRUGS (1)
  1. OXYCONTIN [Suspect]
     Indication: PRODUCT USED FOR UNKNOWN INDICATION
     Dosage: UNK MCG, UNK
     Route: 048
     Dates: start: 20020101

REACTIONS (13)
  - DELUSIONAL DISORDER, UNSPECIFIED TYPE [None]
  - DRUG DEPENDENCE [None]
  - BACK PAIN [None]
  - ANHEDONIA [None]
  - HOSPITALISATION [None]
  - OBSESSIVE-COMPULSIVE DISORDER [None]
  - PAIN [None]
  - PARANOIA [None]
  - ANXIETY [None]
  - ACCIDENTAL OVERDOSE [None]
  - ROAD TRAFFIC ACCIDENT [None]
  - DRUG WITHDRAWAL SYNDROME [None]
  - DEPRESSION [None]
